FAERS Safety Report 13680839 (Version 1)
Quarter: 2017Q2

REPORT INFORMATION
  Report Type: Spontaneous
  Country: US (occurrence: US)
  Receive Date: 20170622
  Receipt Date: 20170622
  Transmission Date: 20170830
  Serious: Yes (Hospitalization)
  Sender: FDA-Public Use
  Company Number: None

PATIENT
  Age: 68 Year
  Sex: Female
  Weight: 69.8 kg

DRUGS (2)
  1. ETOPOSIDE (VP-16) [Suspect]
     Active Substance: ETOPOSIDE
     Dates: end: 20170403
  2. CISPLATIN. [Suspect]
     Active Substance: CISPLATIN
     Dates: end: 20170406

REACTIONS (8)
  - Cholangitis [None]
  - Abdominal pain [None]
  - Back pain [None]
  - Diarrhoea [None]
  - Vomiting [None]
  - Febrile neutropenia [None]
  - Sepsis [None]
  - Cholecystitis [None]

NARRATIVE: CASE EVENT DATE: 20170421
